FAERS Safety Report 13608373 (Version 3)
Quarter: 2017Q3

REPORT INFORMATION
  Report Type: Spontaneous
  Country: JP (occurrence: JP)
  Receive Date: 20170602
  Receipt Date: 20170718
  Transmission Date: 20171127
  Serious: Yes (Death, Hospitalization, Other)
  Sender: FDA-Public Use
  Company Number: JP-BAYER-2017-098400

PATIENT
  Age: 64 Year
  Sex: Male

DRUGS (6)
  1. MAGMITT [Concomitant]
     Active Substance: MAGNESIUM OXIDE
     Dosage: DAILY DOSE 990 MG
     Route: 048
  2. LANSOPRAZOLE. [Concomitant]
     Active Substance: LANSOPRAZOLE
     Dosage: DAILY DOSE 30 MG
     Route: 048
  3. STIVARGA [Suspect]
     Active Substance: REGORAFENIB
     Indication: COLON CANCER
     Dosage: 160 MG, QD (3 WEEKS AND OFF FOR 1 WEEK)
     Route: 048
     Dates: start: 20170327, end: 20170402
  4. OXYCONTIN [Concomitant]
     Active Substance: OXYCODONE HYDROCHLORIDE
     Dosage: DAILY DOSE 10 MG
     Route: 048
     Dates: start: 20170401, end: 20170403
  5. GOSHAJINKIGAN [Concomitant]
     Active Substance: HERBALS
     Dosage: DAILY DOSE 7.5 G
     Route: 048
     Dates: end: 20170403
  6. CARBOCISTEINE [Concomitant]
     Active Substance: CARBOCYSTEINE
     Dosage: DAILY DOSE 1500 MG
     Route: 048
     Dates: end: 20170403

REACTIONS (8)
  - Colon cancer [Fatal]
  - Hyperammonaemia [Recovered/Resolved]
  - Decreased appetite [None]
  - Somnolence [None]
  - Hepatic failure [Recovered/Resolved]
  - Aspartate aminotransferase increased [Recovered/Resolved]
  - Alanine aminotransferase increased [Recovered/Resolved]
  - Abdominal pain [None]

NARRATIVE: CASE EVENT DATE: 20170331
